FAERS Safety Report 12541305 (Version 1)
Quarter: 2016Q3

REPORT INFORMATION
  Report Type: Spontaneous
  Country: BR (occurrence: BR)
  Receive Date: 20160708
  Receipt Date: 20160708
  Transmission Date: 20161109
  Serious: Yes (Other)
  Sender: FDA-Public Use
  Company Number: BR-PFIZER INC-2016333928

PATIENT
  Sex: Female

DRUGS (1)
  1. DEPO-PROVERA [Suspect]
     Active Substance: MEDROXYPROGESTERONE ACETATE
     Indication: CONTRACEPTION

REACTIONS (7)
  - Inappropriate schedule of drug administration [Unknown]
  - Drug ineffective [Unknown]
  - Unintended pregnancy [Unknown]
  - Abortion spontaneous [Unknown]
  - Menorrhagia [Not Recovered/Not Resolved]
  - Headache [Unknown]
  - Abdominal pain [Unknown]
